FAERS Safety Report 22280346 (Version 1)
Quarter: 2023Q2

REPORT INFORMATION
  Report Type: Spontaneous
  Country: US (occurrence: US)
  Receive Date: 20230503
  Receipt Date: 20230503
  Transmission Date: 20230722
  Serious: No
  Sender: FDA-Public Use
  Company Number: US-MYLANLABS-2023M1038843

PATIENT
  Sex: Female
  Weight: 147.41 kg

DRUGS (4)
  1. METHYLPHENIDATE [Suspect]
     Active Substance: METHYLPHENIDATE
     Indication: Attention deficit hyperactivity disorder
     Dosage: 3.3 MILLIGRAM, QH (30 MG OVER 9 HOURS)
     Route: 062
     Dates: start: 20230403
  2. EFFEXOR [Concomitant]
     Active Substance: VENLAFAXINE HYDROCHLORIDE
     Dosage: UNK
     Route: 065
  3. GUANFACINE [Concomitant]
     Active Substance: GUANFACINE
     Dosage: UNK
     Route: 065
  4. BUSPIRONE [Concomitant]
     Active Substance: BUSPIRONE HYDROCHLORIDE
     Dosage: UNK
     Route: 065

REACTIONS (5)
  - Joint stiffness [Unknown]
  - Joint dislocation [Unknown]
  - Musculoskeletal discomfort [Recovering/Resolving]
  - Product adhesion issue [Unknown]
  - Wrong technique in product usage process [Unknown]
